FAERS Safety Report 8215939-9 (Version None)
Quarter: 2012Q1

REPORT INFORMATION
  Report Type: 
  Country: None (occurrence: None)
  Receive Date: 20120316
  Receipt Date: 20120307
  Transmission Date: 20120608
  Serious: Yes (Other)
  Sender: FDA-Public Use
  Company Number: US-GILEAD-2012-0051913

PATIENT
  Age: 28 Year
  Sex: Female

DRUGS (1)
  1. COMPLERA [Suspect]
     Indication: HIV INFECTION
     Dosage: 1 DF, QD
     Route: 048
     Dates: start: 20100901, end: 20110201

REACTIONS (1)
  - PATHOGEN RESISTANCE [None]
